FAERS Safety Report 23729876 (Version 1)
Quarter: 2024Q2

REPORT INFORMATION
  Report Type: Spontaneous
  Country: CO (occurrence: CO)
  Receive Date: 20240411
  Receipt Date: 20240411
  Transmission Date: 20240716
  Serious: Yes (Death)
  Sender: FDA-Public Use
  Company Number: CO-JNJFOC-20240417794

PATIENT
  Age: 48 Year
  Sex: Male

DRUGS (1)
  1. IMBRUVICA [Suspect]
     Active Substance: IBRUTINIB
     Indication: Chronic lymphocytic leukaemia
     Route: 048

REACTIONS (5)
  - Hepatic failure [Fatal]
  - Haematemesis [Fatal]
  - Oxygen saturation abnormal [Fatal]
  - Hepatic encephalopathy [Fatal]
  - Atrial fibrillation [Fatal]
